FAERS Safety Report 23565023 (Version 1)
Quarter: 2024Q1

REPORT INFORMATION
  Report Type: Spontaneous
  Country: IT (occurrence: None)
  Receive Date: 20240226
  Receipt Date: 20240226
  Transmission Date: 20240410
  Serious: Yes (Hospitalization)
  Sender: FDA-Public Use
  Company Number: 2024A041212

PATIENT
  Age: 72 Year
  Sex: Male

DRUGS (4)
  1. TICAGRELOR [Suspect]
     Active Substance: TICAGRELOR
     Indication: Atrial fibrillation
     Route: 048
     Dates: start: 20210210, end: 20240212
  2. ATORVASTATIN [Concomitant]
     Active Substance: ATORVASTATIN
  3. LASIX [Concomitant]
     Active Substance: FUROSEMIDE
  4. RAMIPRIL [Concomitant]
     Active Substance: RAMIPRIL

REACTIONS (3)
  - Anaemia [Recovering/Resolving]
  - Melaena [Recovering/Resolving]
  - Gastrointestinal haemorrhage [Recovering/Resolving]

NARRATIVE: CASE EVENT DATE: 20240212
